FAERS Safety Report 22074436 (Version 3)
Quarter: 2023Q2

REPORT INFORMATION
  Report Type: Report from Study
  Country: US (occurrence: US)
  Receive Date: 20230308
  Receipt Date: 20230418
  Transmission Date: 20230722
  Serious: Yes (Hospitalization, Other)
  Sender: FDA-Public Use
  Company Number: US-BAYER-2022P034256

PATIENT
  Age: 65 Year
  Sex: Male
  Weight: 98.866 kg

DRUGS (12)
  1. ADEMPAS [Suspect]
     Active Substance: RIOCIGUAT
     Indication: Pulmonary arterial hypertension
     Dosage: 0.5 MG, UNK
     Route: 048
     Dates: start: 20220927
  2. ADEMPAS [Suspect]
     Active Substance: RIOCIGUAT
     Indication: Pulmonary arterial hypertension
     Dosage: 1 MG, UNK
     Route: 048
  3. ADEMPAS [Suspect]
     Active Substance: RIOCIGUAT
     Indication: Pulmonary arterial hypertension
     Dosage: 2  MG, TID
     Route: 048
  4. ADEMPAS [Suspect]
     Active Substance: RIOCIGUAT
     Indication: Pulmonary arterial hypertension
     Dosage: 2.5 MG, TID
     Route: 048
  5. ADEMPAS [Suspect]
     Active Substance: RIOCIGUAT
     Indication: Pulmonary arterial hypertension
     Dosage: 2 MG, TID
     Route: 048
  6. ADEMPAS [Suspect]
     Active Substance: RIOCIGUAT
     Indication: Pulmonary arterial hypertension
     Dosage: 2 MG, TID
     Route: 048
  7. ADEMPAS [Suspect]
     Active Substance: RIOCIGUAT
     Indication: Pulmonary arterial hypertension
     Dosage: 1.5 MG, TID
     Route: 048
  8. ADEMPAS [Suspect]
     Active Substance: RIOCIGUAT
     Indication: Pulmonary arterial hypertension
     Dosage: 1 MG, TID
     Route: 048
  9. ADEMPAS [Suspect]
     Active Substance: RIOCIGUAT
     Indication: Pulmonary arterial hypertension
     Dosage: 1 MG, TID
     Route: 048
  10. ELIQUIS [Concomitant]
     Active Substance: APIXABAN
     Dosage: UNK
  11. OXYGEN [Concomitant]
     Active Substance: OXYGEN
  12. LOSARTAN [Concomitant]
     Active Substance: LOSARTAN

REACTIONS (21)
  - Pneumonia [Recovering/Resolving]
  - Influenza [Recovering/Resolving]
  - Dyspnoea exertional [None]
  - Oxygen saturation decreased [None]
  - Pericardial effusion [None]
  - Lung disorder [None]
  - Ear infection [Recovering/Resolving]
  - Weight decreased [None]
  - Fluid retention [None]
  - Dyspnoea [Not Recovered/Not Resolved]
  - Feeling abnormal [None]
  - Tinnitus [None]
  - Colopathy [None]
  - Multiple allergies [None]
  - Epistaxis [None]
  - Peripheral swelling [Recovering/Resolving]
  - Hypotension [Not Recovered/Not Resolved]
  - Dyspnoea [None]
  - Oxygen saturation decreased [None]
  - Nasal disorder [None]
  - Peripheral swelling [None]

NARRATIVE: CASE EVENT DATE: 20221201
